FAERS Safety Report 5865034-9 (Version None)
Quarter: 2008Q3

REPORT INFORMATION
  Report Type: 
  Country: None (occurrence: None)
  Receive Date: 20080829
  Receipt Date: 20080822
  Transmission Date: 20090109
  Serious: Yes (Hospitalization)
  Sender: FDA-Public Use
  Company Number: A0709945A

PATIENT
  Age: 54 Year
  Sex: Male
  Weight: 84.1 kg

DRUGS (4)
  1. AVANDIA [Suspect]
     Dosage: 4MG SEE DOSAGE TEXT
     Route: 048
     Dates: start: 20050101, end: 20080101
  2. AVANDAMET [Concomitant]
     Dosage: 500MG PER DAY
     Route: 065
     Dates: start: 20040101, end: 20050101
  3. AVANDAMET [Concomitant]
     Dosage: 1000MG PER DAY
     Route: 065
     Dates: start: 20070101, end: 20080130
  4. STARLIX [Concomitant]

REACTIONS (3)
  - INJURY [None]
  - MYOCARDIAL INFARCTION [None]
  - PAIN [None]
